FAERS Safety Report 17268754 (Version 1)
Quarter: 2020Q1

REPORT INFORMATION
  Report Type: Report from Study
  Country: US (occurrence: US)
  Receive Date: 20200114
  Receipt Date: 20200114
  Transmission Date: 20200409
  Serious: Yes (Other)
  Sender: FDA-Public Use
  Company Number: US-AMGEN-USASP2020002989

PATIENT
  Age: 62 Year
  Sex: Female

DRUGS (1)
  1. BLINCYTO [Suspect]
     Active Substance: BLINATUMOMAB
     Indication: PRECURSOR B-LYMPHOBLASTIC LYMPHOMA REFRACTORY
     Dosage: UNK
     Route: 065

REACTIONS (12)
  - Cytokine release syndrome [Unknown]
  - Infection [Unknown]
  - Thrombocytopenia [Unknown]
  - Nausea [Unknown]
  - Vomiting [Unknown]
  - Febrile neutropenia [Unknown]
  - Neurotoxicity [Unknown]
  - Neutropenia [Unknown]
  - Bone marrow failure [Unknown]
  - Oedema peripheral [Unknown]
  - Leukopenia [Unknown]
  - Anaemia [Unknown]
